FAERS Safety Report 4517944-2 (Version None)
Quarter: 2004Q4

REPORT INFORMATION
  Report Type: 
  Country: None (occurrence: None)
  Receive Date: 20041130
  Receipt Date: 20041116
  Transmission Date: 20050328
  Serious: Yes (Hospitalization)
  Sender: FDA-Public Use
  Company Number: B0357362A

PATIENT
  Age: 44 Year
  Sex: Male

DRUGS (6)
  1. EPIVIR [Suspect]
     Dates: start: 20030701, end: 20030101
  2. STAVUDINE (STAVUDINE) [Suspect]
     Dates: start: 20030701, end: 20030101
  3. LOPINAVIR + RITONAVIR [Concomitant]
  4. CO-TRIMOXAZOLE [Concomitant]
  5. FRUSEMIDE [Concomitant]
  6. SPIRONOLACTONE [Concomitant]

REACTIONS (5)
  - ASCITES [None]
  - HYPERKALAEMIA [None]
  - METABOLIC ACIDOSIS [None]
  - MITOCHONDRIAL TOXICITY [None]
  - RENAL TUBULAR ACIDOSIS [None]
